FAERS Safety Report 11122676 (Version 1)
Quarter: 2015Q2

REPORT INFORMATION
  Report Type: Spontaneous
  Country: US (occurrence: US)
  Receive Date: 20150519
  Receipt Date: 20150519
  Transmission Date: 20150821
  Serious: Yes (Other)
  Sender: FDA-Public Use
  Company Number: US-AMGEN-USASP2015046740

PATIENT
  Age: 57 Year
  Sex: Female

DRUGS (1)
  1. ENBREL [Suspect]
     Active Substance: ETANERCEPT
     Indication: RHEUMATOID ARTHRITIS
     Dosage: 50 MG, QWK
     Route: 065
     Dates: start: 20121201, end: 201412

REACTIONS (4)
  - Tooth abscess [Not Recovered/Not Resolved]
  - Tooth injury [Not Recovered/Not Resolved]
  - Tooth extraction [Not Recovered/Not Resolved]
  - Bone graft [Not Recovered/Not Resolved]

NARRATIVE: CASE EVENT DATE: 201412
